FAERS Safety Report 4679399-7 (Version None)
Quarter: 2005Q2

REPORT INFORMATION
  Report Type: 
  Country: None (occurrence: None)
  Receive Date: 20050531
  Receipt Date: 20050518
  Transmission Date: 20051028
  Serious: Yes (Hospitalization)
  Sender: FDA-Public Use
  Company Number: B0373160A

PATIENT
  Age: 51 Year
  Sex: Male
  Weight: 77.8372 kg

DRUGS (4)
  1. MALARONE [Suspect]
     Indication: MALARIA
     Dosage: SEE IMAGE
     Route: 048
     Dates: start: 20041001
  2. ATORVASTATIN CALCIUM [Concomitant]
  3. LYSINE ASPIRIN [Concomitant]
  4. PARACETAMOL [Concomitant]

REACTIONS (17)
  - ASTHENIA [None]
  - BLOOD URINE PRESENT [None]
  - C-REACTIVE PROTEIN INCREASED [None]
  - CHILLS [None]
  - CHROMOSOMAL MUTATION [None]
  - DIARRHOEA [None]
  - DRUG INEFFECTIVE [None]
  - HAEMOGLOBIN DECREASED [None]
  - HYPERHIDROSIS [None]
  - PARASITE BLOOD TEST POSITIVE [None]
  - PATHOGEN RESISTANCE [None]
  - PROTEIN URINE PRESENT [None]
  - PYREXIA [None]
  - RED BLOOD CELL COUNT DECREASED [None]
  - SELF-MEDICATION [None]
  - SERUM FERRITIN INCREASED [None]
  - URINE BILIRUBIN DECREASED [None]
